FAERS Safety Report 21024390 (Version 1)
Quarter: 2022Q2

REPORT INFORMATION
  Report Type: Spontaneous
  Country: US (occurrence: US)
  Receive Date: 20220629
  Receipt Date: 20220629
  Transmission Date: 20220721
  Serious: Yes (Life-Threatening, Other)
  Sender: FDA-Public Use
  Company Number: US-AMERICAN REGENT INC-2022001815

PATIENT
  Age: 43 Year
  Sex: Female

DRUGS (1)
  1. VENOFER [Suspect]
     Active Substance: IRON SUCROSE
     Indication: Iron deficiency anaemia
     Dosage: 500 MG IN 250 ML NORMAL SALINE OVER 4 HRS.
     Route: 042
     Dates: start: 20220623, end: 20220623

REACTIONS (6)
  - Skin tightness [Recovering/Resolving]
  - Joint stiffness [Recovering/Resolving]
  - Rash papular [Not Recovered/Not Resolved]
  - Chromaturia [Recovering/Resolving]
  - Back pain [Recovering/Resolving]
  - Dyspnoea [Recovering/Resolving]

NARRATIVE: CASE EVENT DATE: 20220623
